FAERS Safety Report 17618496 (Version 1)
Quarter: 2020Q2

REPORT INFORMATION
  Report Type: Spontaneous
  Country: US (occurrence: US)
  Receive Date: 20200402
  Receipt Date: 20200402
  Transmission Date: 20200713
  Serious: No
  Sender: FDA-Public Use
  Company Number: US-ROCHE-2421859

PATIENT
  Age: 64 Year
  Sex: Male
  Weight: 77.18 kg

DRUGS (1)
  1. ERIVEDGE [Suspect]
     Active Substance: VISMODEGIB
     Indication: SKIN CANCER
     Route: 048
     Dates: start: 20190801

REACTIONS (5)
  - Temperature intolerance [Not Recovered/Not Resolved]
  - Temperature intolerance [Not Recovered/Not Resolved]
  - Skin burning sensation [Not Recovered/Not Resolved]
  - Fatigue [Not Recovered/Not Resolved]
  - Taste disorder [Not Recovered/Not Resolved]

NARRATIVE: CASE EVENT DATE: 201908
